FAERS Safety Report 19429375 (Version 2)
Quarter: 2021Q2

REPORT INFORMATION
  Report Type: Spontaneous
  Country: US (occurrence: US)
  Receive Date: 20210617
  Receipt Date: 20210622
  Transmission Date: 20210717
  Serious: Yes (Other)
  Sender: FDA-Public Use
  Company Number: US-PFIZER INC-2020125018

PATIENT
  Age: 69 Year
  Sex: Female
  Weight: 99.8 kg

DRUGS (3)
  1. PREMARIN [Suspect]
     Active Substance: ESTROGENS, CONJUGATED
     Indication: ILL-DEFINED DISORDER
     Dosage: 0.5 G, 2X/WEEK
     Route: 067
     Dates: start: 20210607
  2. PREMARIN [Suspect]
     Active Substance: ESTROGENS, CONJUGATED
     Indication: BACK DISORDER
     Dosage: UNK
  3. PREMARIN [Suspect]
     Active Substance: ESTROGENS, CONJUGATED
     Indication: VULVOVAGINAL DRYNESS
     Dosage: UNK UNK, 2X/WEEK (INSERT IT ONCE A DAY TWO TIMES A WEEK)

REACTIONS (2)
  - COVID-19 [Unknown]
  - Expired product administered [Unknown]
